FAERS Safety Report 19896328 (Version 1)
Quarter: 2021Q3

REPORT INFORMATION
  Report Type: Spontaneous
  Country: SE (occurrence: SE)
  Receive Date: 20210929
  Receipt Date: 20210929
  Transmission Date: 20211014
  Serious: Yes (Other)
  Sender: FDA-Public Use
  Company Number: SE-PFIZER INC-202101215800

PATIENT
  Sex: Male

DRUGS (1)
  1. SPIRONOLAKTON PFIZER [Suspect]
     Active Substance: SPIRONOLACTONE
     Indication: CARDIAC FAILURE
     Dosage: 25 MG, 1X/DAY
     Route: 048
     Dates: start: 2012, end: 20210222

REACTIONS (1)
  - Erectile dysfunction [Recovered/Resolved]
